FAERS Safety Report 4848151-1 (Version None)
Quarter: 2005Q4

REPORT INFORMATION
  Report Type: 
  Country: None (occurrence: None)
  Receive Date: 20051208
  Receipt Date: 20051129
  Transmission Date: 20060501
  Serious: Yes (Other)
  Sender: FDA-Public Use
  Company Number: US-JNJFOC-20051200158

PATIENT
  Sex: Male

DRUGS (8)
  1. REMICADE [Suspect]
     Indication: RHEUMATOID ARTHRITIS
     Route: 042
  2. METHOTREXATE [Concomitant]
  3. LASIX [Concomitant]
     Indication: HYPERTENSION
  4. LISINOPRIL [Concomitant]
     Indication: HYPERTENSION
  5. MINOCYCLINE [Concomitant]
     Indication: ROSACEA
  6. FOLIC ACID [Concomitant]
  7. CENTRUM [Concomitant]
  8. CENTRUM [Concomitant]

REACTIONS (1)
  - MALIGNANT MELANOMA [None]
